FAERS Safety Report 7377716-0 (Version None)
Quarter: 2011Q1

REPORT INFORMATION
  Report Type: 
  Country: None (occurrence: None)
  Receive Date: 20110328
  Receipt Date: 20110317
  Transmission Date: 20110831
  Serious: Yes (Other)
  Sender: FDA-Public Use
  Company Number: FR-JNJFOC-20110300709

PATIENT
  Sex: Male
  Weight: 75 kg

DRUGS (4)
  1. NICORETTE [Suspect]
     Route: 062
  2. CARBIMAZOLE [Concomitant]
     Indication: HYPERTHYROIDISM
     Route: 048
  3. TAHOR [Concomitant]
     Indication: HYPERCHOLESTEROLAEMIA
     Route: 048
  4. NICORETTE [Suspect]
     Indication: SMOKING CESSATION THERAPY
     Route: 062

REACTIONS (2)
  - APPLICATION SITE EXFOLIATION [None]
  - SKIN PLAQUE [None]
